FAERS Safety Report 9255333 (Version 1)
Quarter: 2013Q1

REPORT INFORMATION
  Report Type: Spontaneous
  Country: US (occurrence: None)
  Receive Date: 20121212
  Receipt Date: 20121212
  Transmission Date: 20140127
  Serious: No
  Sender: FDA-Public Use
  Company Number: 1209USA011312

PATIENT
  Age: 58 Year
  Sex: Male

DRUGS (6)
  1. VICTRELIS [Suspect]
     Dosage: 4 DF, Q8H, ORAL
     Route: 048
     Dates: start: 2012
  2. PEGASYS [Suspect]
     Indication: HEPATITIS C
     Dosage: UNK
     Dates: start: 201207
  3. RIBASPHERE [Suspect]
     Indication: HEPATITIS C
     Dosage: UNK
     Dates: start: 201207
  4. FLUOCINONIDE (FLUOCINONIDE) [Concomitant]
  5. TRIAMCINOLONE ACETONIDE (TRIAMCINOLONE ACETONIDE) [Concomitant]
  6. CANASA (MESALAMINE) SUPPOSITORY, 1000MG [Concomitant]

REACTIONS (3)
  - Pain [None]
  - Dysgeusia [None]
  - Fatigue [None]
